FAERS Safety Report 14536780 (Version 1)
Quarter: 2018Q1

REPORT INFORMATION
  Report Type: Spontaneous
  Country: US (occurrence: US)
  Receive Date: 20180215
  Receipt Date: 20180215
  Transmission Date: 20180509
  Serious: No
  Sender: FDA-Public Use
  Company Number: US-BAYER-2018-025191

PATIENT
  Age: 83 Year
  Sex: Female
  Weight: 54 kg

DRUGS (1)
  1. MIRALAX [Suspect]
     Active Substance: POLYETHYLENE GLYCOL 3350
     Indication: IRRITABLE BOWEL SYNDROME
     Dosage: 0.5 DF, QD
     Route: 048

REACTIONS (6)
  - Underdose [Unknown]
  - Product use in unapproved indication [Unknown]
  - Incorrect drug administration duration [Unknown]
  - Circumstance or information capable of leading to medication error [Unknown]
  - Feeling abnormal [Not Recovered/Not Resolved]
  - Infrequent bowel movements [Not Recovered/Not Resolved]

NARRATIVE: CASE EVENT DATE: 20180206
